FAERS Safety Report 18937166 (Version 2)
Quarter: 2021Q1

REPORT INFORMATION
  Report Type: Spontaneous
  Country: CH (occurrence: CH)
  Receive Date: 20210224
  Receipt Date: 20210302
  Transmission Date: 20210420
  Serious: Yes (Life-Threatening, Other)
  Sender: FDA-Public Use
  Company Number: CH-B.I. PHARMACEUTICALS,INC./RIDGEFIELD-2021-BI-085652

PATIENT
  Age: 3 Month
  Sex: Male
  Weight: 5.5 kg

DRUGS (10)
  1. CYKLOKAPRON [Concomitant]
     Active Substance: TRANEXAMIC ACID
     Indication: PRODUCT USED FOR UNKNOWN INDICATION
     Dosage: 100 MG (AT 09H20 APPROX.) IN TOTAL FREQUENCY: 1, FREQUENCY UNIT: 809
     Dates: start: 20210106, end: 20210106
  2. MEPHAMESONE [Concomitant]
     Active Substance: DEXAMETHASONE
     Indication: PRODUCT USED FOR UNKNOWN INDICATION
     Dosage: 2 MG AT 16H20 IN TOTAL FREQUENCY: 1, FREQUENCY UNIT: 809
     Dates: start: 20210106, end: 20210106
  3. SINTENYL [Suspect]
     Active Substance: FENTANYL CITRATE
     Indication: PRODUCT USED FOR UNKNOWN INDICATION
     Dosage: 7X (AT 07H30, 08H00, 08H40, 09H30, 10H40, 11H10, 12H20 APPROX.) FREQUENCY: 7, FREQUENCY UNIT: 809
     Dates: start: 20210106, end: 20210106
  4. TRACRIUM [Concomitant]
     Active Substance: ATRACURIUM BESYLATE
     Indication: PRODUCT USED FOR UNKNOWN INDICATION
     Dosage: 2.5 MG (AT 07H30 APPROX.) FREQUENCY: 1, FREQUENCY UNIT: 809
     Dates: start: 20210106, end: 20210106
  5. PALLADON [Suspect]
     Active Substance: HYDROMORPHONE
     Indication: PRODUCT USED FOR UNKNOWN INDICATION
     Dosage: 18 MCG AT 13H20 (15 MCG / KG EVERY 3 TO 6 HOURS) IN TOTAL
     Dates: start: 20210106, end: 20210106
  6. NAROPIN [Concomitant]
     Active Substance: ROPIVACAINE HYDROCHLORIDE
     Indication: PRODUCT USED FOR UNKNOWN INDICATION
     Dosage: AT 12H20 AND AT 13H50 IN TOTAL FREQUENCY: 2, FREQUENCY UNIT: 809
     Dates: start: 20210106, end: 20210106
  7. CATAPRESAN [Suspect]
     Active Substance: CLONIDINE
     Indication: PRODUCT USED FOR UNKNOWN INDICATION
     Dosage: 12H20 TO 13H20 IN TOTAL FREQUENCY: 1, FREQUENCY UNIT: 809
     Dates: start: 20210106, end: 20210106
  8. AUGMENTIN [Concomitant]
     Active Substance: AMOXICILLIN\CLAVULANATE POTASSIUM
     Indication: PRODUCT USED FOR UNKNOWN INDICATION
     Dosage: AT 07H50 AND 12H30 APPROX. FREQUENCY: 2, FREQUENCY UNIT: 809
     Dates: start: 20210106, end: 20210106
  9. NARCAN [Concomitant]
     Active Substance: NALOXONE HYDROCHLORIDE
     Indication: PRODUCT USED FOR UNKNOWN INDICATION
     Dosage: 1 MCG 3X (AT 14H20, 14H35 AND 14H50 APPROX.) IN TOTAL FREQUENCY: 3, FREQUENCY UNIT: 809
     Dates: start: 20210106, end: 20210106
  10. ROBINUL [Concomitant]
     Active Substance: GLYCOPYRROLATE
     Indication: PRODUCT USED FOR UNKNOWN INDICATION
     Dosage: 60 MCG (AT 13H40 APPROX.) IN TOTAL FREQUENCY: 1, FREQUENCY UNIT: 809
     Dates: start: 20210106, end: 20210106

REACTIONS (3)
  - Respiratory depression [Recovered/Resolved]
  - Sedation complication [Recovered/Resolved]
  - Acidosis [Recovered/Resolved]

NARRATIVE: CASE EVENT DATE: 20210106
